FAERS Safety Report 6941017-2 (Version None)
Quarter: 2010Q3

REPORT INFORMATION
  Report Type: 
  Country: None (occurrence: None)
  Receive Date: 20100825
  Receipt Date: 20100817
  Transmission Date: 20110219
  Serious: Yes (Hospitalization)
  Sender: FDA-Public Use
  Company Number: B0669420A

PATIENT
  Sex: Female

DRUGS (5)
  1. PAXIL [Suspect]
     Indication: ANXIETY
     Dosage: 20MG PER DAY
     Dates: start: 20051104, end: 20100802
  2. PAXIL [Suspect]
     Dosage: 10MG PER DAY
     Dates: start: 20100803
  3. DORMICUM [Suspect]
     Indication: PRODUCT USED FOR UNKNOWN INDICATION
  4. LEVOTOMIN [Concomitant]
     Indication: INSOMNIA
     Dates: start: 20091017
  5. ROHYPNOL [Concomitant]
     Dosage: 3MG PER DAY
     Dates: start: 20040823, end: 20100802

REACTIONS (4)
  - DRUG EXPOSURE DURING PREGNANCY [None]
  - FEEDING DISORDER NEONATAL [None]
  - PERSISTENT FOETAL CIRCULATION [None]
  - SOMNOLENCE [None]
